FAERS Safety Report 15815350 (Version 2)
Quarter: 2021Q1

REPORT INFORMATION
  Report Type: Spontaneous
  Country: FR (occurrence: FR)
  Receive Date: 20190112
  Receipt Date: 20210212
  Transmission Date: 20210419
  Serious: Yes (Other)
  Sender: FDA-Public Use
  Company Number: FR-AMGEN-FRASP2019004563

PATIENT
  Age: 33 Year
  Sex: Male

DRUGS (1)
  1. ROMIPLOSTIM [Suspect]
     Active Substance: ROMIPLOSTIM
     Indication: IMMUNE THROMBOCYTOPENIA
     Dosage: 10 MICROGRAM/KILOGRAM, QWK
     Route: 058

REACTIONS (3)
  - Thrombocytosis [Unknown]
  - Off label use [Unknown]
  - Therapy non-responder [Unknown]
